FAERS Safety Report 7532534-5 (Version None)
Quarter: 2011Q2

REPORT INFORMATION
  Report Type: 
  Country: None (occurrence: None)
  Receive Date: 20110608
  Receipt Date: 20110526
  Transmission Date: 20111010
  Serious: Yes (Hospitalization)
  Sender: FDA-Public Use
  Company Number: PHHY2011US45572

PATIENT
  Age: 57 Year
  Sex: Male

DRUGS (14)
  1. PHENOBARBITAL TAB [Interacting]
     Dosage: 64.8 MG, BID
  2. PHENOBARBITAL TAB [Interacting]
     Dosage: DOSE REDUCED BY 50 %
  3. PHENOBARBITAL TAB [Interacting]
     Dosage: 16.2 MG, BID
  4. TACROLIMUS [Interacting]
     Dosage: 13 MG, Q12H
  5. METHYLPREDNISOLONE [Concomitant]
     Dosage: UNK UKN, UNK
  6. CARBAMAZEPINE [Interacting]
     Indication: CONVULSION
     Dosage: 400 MG, BID
  7. GLOBULIN N [Concomitant]
     Dosage: UNK UKN, UNK
  8. TACROLIMUS [Interacting]
     Dosage: 15 MG, UNK
  9. TACROLIMUS [Interacting]
     Dosage: 8 MG, UNK
  10. TACROLIMUS [Interacting]
     Dosage: 13 MG, UNK
  11. TACROLIMUS [Interacting]
     Dosage: 11 MG, UNK
  12. LEVETIRACETAM [Suspect]
     Dosage: UNK UKN, UNK
  13. TACROLIMUS [Interacting]
     Dosage: 3 MG, Q12H
  14. TACROLIMUS [Interacting]
     Dosage: 5 MG, UNK

REACTIONS (3)
  - DRUG INTERACTION [None]
  - DRUG LEVEL BELOW THERAPEUTIC [None]
  - TRANSPLANT REJECTION [None]
